FAERS Safety Report 6151009-1 (Version None)
Quarter: 2009Q2

REPORT INFORMATION
  Report Type: 
  Country: None (occurrence: None)
  Receive Date: 20090410
  Receipt Date: 20090224
  Transmission Date: 20091009
  Serious: No
  Sender: FDA-Public Use
  Company Number: A0769991A

PATIENT
  Age: 48 Year
  Sex: Female

DRUGS (4)
  1. TYKERB [Suspect]
     Indication: BREAST CANCER
     Dosage: 1250MG PER DAY
     Route: 048
     Dates: start: 20090206
  2. XELODA [Concomitant]
  3. LUPRON [Concomitant]
  4. OTHER MEDICATIONS [Concomitant]

REACTIONS (6)
  - BURNING SENSATION [None]
  - ERYTHEMA [None]
  - ILL-DEFINED DISORDER [None]
  - RASH [None]
  - RASH MACULAR [None]
  - SKIN TIGHTNESS [None]
